FAERS Safety Report 14103560 (Version 1)
Quarter: 2017Q4

REPORT INFORMATION
  Report Type: Report from Study
  Country: CA (occurrence: CA)
  Receive Date: 20171018
  Receipt Date: 20171018
  Transmission Date: 20180321
  Serious: Yes (Hospitalization, Other)
  Sender: FDA-Public Use
  Company Number: CA-JNJFOC-20171014763

PATIENT
  Age: 68 Year
  Sex: Female

DRUGS (1)
  1. STELARA [Suspect]
     Active Substance: USTEKINUMAB
     Indication: PSORIASIS
     Dosage: STRENGTH = 90 MG
     Route: 058
     Dates: start: 20130604

REACTIONS (4)
  - Intestinal ischaemia [Unknown]
  - Colectomy [Recovering/Resolving]
  - Postoperative ileus [Unknown]
  - Post procedural pulmonary embolism [Unknown]

NARRATIVE: CASE EVENT DATE: 2017
